FAERS Safety Report 14074010 (Version 1)
Quarter: 2017Q4

REPORT INFORMATION
  Report Type: Spontaneous
  Country: FR (occurrence: FR)
  Receive Date: 20171011
  Receipt Date: 20171011
  Transmission Date: 20180321
  Serious: Yes (Hospitalization)
  Sender: FDA-Public Use
  Company Number: FR-PFIZER INC-2017429019

PATIENT
  Age: 55 Year
  Sex: Female

DRUGS (10)
  1. INEXIUM /01479302/ [Concomitant]
     Active Substance: ESOMEPRAZOLE MAGNESIUM
  2. PERINDOPRIL [Concomitant]
     Active Substance: PERINDOPRIL
  3. INDAPAMIDE. [Concomitant]
     Active Substance: INDAPAMIDE
  4. MABTHERA [Concomitant]
     Active Substance: RITUXIMAB
  5. KETOPROFENE /00321701/ [Concomitant]
     Active Substance: KETOPROFEN
  6. ATORVASTATIN [Concomitant]
     Active Substance: ATORVASTATIN
  7. PHENERGAN [Suspect]
     Active Substance: PROMETHAZINE HYDROCHLORIDE
     Indication: PREMEDICATION
     Dosage: 50 MG, SINGLE
     Route: 041
     Dates: start: 20170927, end: 20170927
  8. AMLODIPINE [Concomitant]
     Active Substance: AMLODIPINE BESYLATE
  9. SOLU-MEDROL [Suspect]
     Active Substance: METHYLPREDNISOLONE SODIUM SUCCINATE
     Indication: PREMEDICATION
     Dosage: 100 MG, SINGLE
     Route: 041
     Dates: start: 20170927, end: 20170927
  10. DOLIPRANE [Concomitant]
     Active Substance: ACETAMINOPHEN

REACTIONS (6)
  - Injection site pain [Recovered/Resolved]
  - Hypoaesthesia [Recovered/Resolved]
  - Dysarthria [Recovered/Resolved]
  - Pain [Recovered/Resolved]
  - Pain in extremity [Recovered/Resolved]
  - Somnolence [Recovered/Resolved]

NARRATIVE: CASE EVENT DATE: 20170927
